FAERS Safety Report 13263955 (Version 2)
Quarter: 2017Q1

REPORT INFORMATION
  Report Type: Spontaneous
  Country: US (occurrence: US)
  Receive Date: 20170223
  Receipt Date: 20170316
  Transmission Date: 20170428
  Serious: No
  Sender: FDA-Public Use
  Company Number: US-JNJFOC-20170216635

PATIENT
  Age: 61 Year
  Sex: Female
  Weight: 58.97 kg

DRUGS (2)
  1. CHILDRENS ZYRTEC [Suspect]
     Active Substance: CETIRIZINE HYDROCHLORIDE
     Indication: PRODUCT USED FOR UNKNOWN INDICATION
     Dosage: 1 TEASPOONFUL
     Route: 065
  2. CHILDRENS ZYRTEC [Suspect]
     Active Substance: CETIRIZINE HYDROCHLORIDE
     Route: 065

REACTIONS (3)
  - Product formulation issue [Unknown]
  - Product odour abnormal [Unknown]
  - Headache [Recovered/Resolved]
